FAERS Safety Report 11564174 (Version 1)
Quarter: 2015Q3

REPORT INFORMATION
  Report Type: Spontaneous
  Country: US (occurrence: US)
  Receive Date: 20150928
  Receipt Date: 20150928
  Transmission Date: 20151125
  Serious: No
  Sender: FDA-Public Use
  Company Number: US-ASTRAZENECA-2015SE90199

PATIENT
  Sex: Female

DRUGS (1)
  1. FASLODEX [Suspect]
     Active Substance: FULVESTRANT
     Indication: BREAST CANCER
     Route: 030
     Dates: start: 20150827

REACTIONS (7)
  - Breast mass [Unknown]
  - Sleep disorder due to general medical condition, insomnia type [Unknown]
  - Lymphoedema [Unknown]
  - Peripheral swelling [Unknown]
  - Oedema peripheral [Unknown]
  - Weight increased [Unknown]
  - Movement disorder [Unknown]
